FAERS Safety Report 4354822-6 (Version None)
Quarter: 2004Q2

REPORT INFORMATION
  Report Type: 
  Country: None (occurrence: None)
  Receive Date: 20040507
  Receipt Date: 20040427
  Transmission Date: 20050107
  Serious: Yes (Hospitalization)
  Sender: FDA-Public Use
  Company Number: US-ROCHE-365855

PATIENT
  Sex: Male
  Weight: 67.1 kg

DRUGS (4)
  1. FUZEON [Suspect]
     Route: 058
     Dates: start: 20040221
  2. KALETRA [Concomitant]
     Route: 048
     Dates: start: 20030615
  3. AZT [Concomitant]
     Route: 048
     Dates: start: 20030615
  4. 3TC [Concomitant]
     Route: 048
     Dates: start: 20030615

REACTIONS (5)
  - DIARRHOEA [None]
  - GIARDIASIS [None]
  - INJECTION SITE PAIN [None]
  - MYCOBACTERIUM AVIUM COMPLEX INFECTION [None]
  - WEIGHT DECREASED [None]
